FAERS Safety Report 16751092 (Version 8)
Quarter: 2020Q3

REPORT INFORMATION
  Report Type: Report from Study
  Country: CN (occurrence: CN)
  Receive Date: 20190828
  Receipt Date: 20200701
  Transmission Date: 20201102
  Serious: Yes (Hospitalization, Other)
  Sender: FDA-Public Use
  Company Number: CN-ROCHE-2394795

PATIENT
  Age: 29 Year

DRUGS (13)
  1. VEMURAFENIB. [Suspect]
     Active Substance: VEMURAFENIB
     Route: 048
     Dates: start: 20190805, end: 20190806
  2. VEMURAFENIB. [Suspect]
     Active Substance: VEMURAFENIB
     Indication: MALIGNANT MELANOMA
     Route: 048
     Dates: start: 20190726, end: 20190806
  3. VEMURAFENIB. [Suspect]
     Active Substance: VEMURAFENIB
     Route: 048
     Dates: start: 20190803, end: 20190804
  4. VEMURAFENIB. [Suspect]
     Active Substance: VEMURAFENIB
     Route: 048
     Dates: start: 20190726, end: 20190806
  5. VEMURAFENIB. [Suspect]
     Active Substance: VEMURAFENIB
     Route: 048
     Dates: start: 20190705, end: 20190806
  6. OFLOXACIN. [Concomitant]
     Active Substance: OFLOXACIN
     Indication: EYE PAIN
     Route: 047
     Dates: start: 20190808
  7. PREDNISONE ACETATE [Concomitant]
     Active Substance: PREDNISONE ACETATE
     Indication: HYPERSENSITIVITY
     Route: 065
     Dates: start: 20190807
  8. VEMURAFENIB. [Suspect]
     Active Substance: VEMURAFENIB
     Route: 048
     Dates: start: 20190805, end: 20190806
  9. LORATADINE. [Concomitant]
     Active Substance: LORATADINE
     Indication: HYPERSENSITIVITY
     Route: 065
     Dates: start: 20190806, end: 20190809
  10. LEVOFLOXACIN. [Concomitant]
     Active Substance: LEVOFLOXACIN
     Indication: EYE PAIN
     Route: 047
     Dates: start: 20190808
  11. MAGNESIUM ISOGLYCYRRHIZINATE [Concomitant]
     Active Substance: MAGNESIUM ISOGLYCYRRHIZINATE
     Indication: PROPHYLAXIS
     Route: 042
     Dates: start: 20190810
  12. VEMURAFENIB. [Suspect]
     Active Substance: VEMURAFENIB
     Route: 048
     Dates: start: 20190911, end: 20200224
  13. INDOMETHACIN [INDOMETACIN] [Concomitant]
     Active Substance: INDOMETHACIN
     Route: 065
     Dates: start: 20190805

REACTIONS (23)
  - Eye pain [Recovered/Resolved]
  - Vomiting [Recovered/Resolved]
  - Pharyngitis [Recovered/Resolved]
  - Musculoskeletal pain [Recovering/Resolving]
  - Pyrexia [Recovered/Resolved]
  - Productive cough [Recovered/Resolved]
  - Liver disorder [Recovered/Resolved]
  - Constipation [Recovered/Resolved]
  - Hypophosphataemia [Recovered/Resolved]
  - Hypokalaemia [Recovered/Resolved]
  - Nausea [Recovered/Resolved]
  - Oliguria [Recovered/Resolved]
  - Pyrexia [Recovered/Resolved]
  - Aspartate aminotransferase increased [Recovered/Resolved]
  - Drug eruption [Recovered/Resolved]
  - Hypocalcaemia [Recovered/Resolved]
  - Chest discomfort [Recovered/Resolved]
  - Platelet count decreased [Recovered/Resolved]
  - Sleep disorder [Not Recovered/Not Resolved]
  - Hypoproteinaemia [Recovered/Resolved]
  - Dyspnoea [Recovered/Resolved]
  - Anaemia [Recovering/Resolving]
  - Alanine aminotransferase increased [Recovered/Resolved]

NARRATIVE: CASE EVENT DATE: 20190726
